FAERS Safety Report 25222378 (Version 2)
Quarter: 2025Q2

REPORT INFORMATION
  Report Type: Report from Study
  Country: CO (occurrence: CO)
  Receive Date: 20250421
  Receipt Date: 20250519
  Transmission Date: 20250716
  Serious: Yes (Hospitalization)
  Sender: MERCK SHARP & DOHME LLC
  Company Number: CO-009507513-2404COL007063

PATIENT
  Age: 43 Year
  Sex: Female

DRUGS (3)
  1. KEYTRUDA [Suspect]
     Active Substance: PEMBROLIZUMAB
     Indication: Cervix carcinoma
     Dosage: DOSE DESCRIPTION : 200 MILLIGRAM, Q3W?DAILY DOSE : 9.4 MILLIGRAM?REGIMEN DOSE : 600  MILLIGRAM
     Route: 042
     Dates: start: 20240216, end: 20240409
  2. KEYTRUDA [Suspect]
     Active Substance: PEMBROLIZUMAB
     Indication: Cervix carcinoma
     Dosage: DOSE DESCRIPTION : 200 MILLIGRAM, Q3W, CYCLE 12?DAILY DOSE : 9.4 MILLIGRAM?REGIMEN DOSE : 200  MI...
     Route: 042
     Dates: start: 20241121, end: 20241121
  3. CARBOPLATIN [Suspect]
     Active Substance: CARBOPLATIN
     Indication: Cervix carcinoma
     Route: 042
     Dates: start: 20240216, end: 20240409

REACTIONS (10)
  - Urinary tract infection [Recovered/Resolved]
  - Pelvic pain [Recovering/Resolving]
  - Nephrostomy [Recovering/Resolving]
  - Back pain [Recovering/Resolving]
  - Asthenia [Recovered/Resolved]
  - Arthralgia [Recovering/Resolving]
  - Discomfort [Recovered/Resolved]
  - Micturition disorder [Recovering/Resolving]
  - Dermatitis allergic [Recovered/Resolved]
  - Product use in unapproved indication [Unknown]

NARRATIVE: CASE EVENT DATE: 20240216
